FAERS Safety Report 4955777-3 (Version None)
Quarter: 2006Q1

REPORT INFORMATION
  Report Type: 
  Country: None (occurrence: None)
  Receive Date: 20060328
  Receipt Date: 20060316
  Transmission Date: 20060701
  Serious: Yes (Life-Threatening, Hospitalization, Other)
  Sender: FDA-Public Use
  Company Number: CA-JNJFOC-20051203337

PATIENT
  Sex: Female

DRUGS (6)
  1. REMICADE [Suspect]
     Dosage: 8-10 MONTHS
     Route: 042
  2. REMICADE [Suspect]
     Indication: RHEUMATOID ARTHRITIS
     Route: 042
  3. METHOTREXATE [Concomitant]
     Route: 048
  4. PREDNISONE [Concomitant]
  5. FOLIC ACID [Concomitant]
  6. FOSAMOX [Concomitant]

REACTIONS (3)
  - LUNG NEOPLASM MALIGNANT [None]
  - TUBERCULOSIS [None]
  - X-RAY ABNORMAL [None]
